FAERS Safety Report 19516360 (Version 1)
Quarter: 2021Q3

REPORT INFORMATION
  Report Type: Spontaneous
  Country: US (occurrence: US)
  Receive Date: 20210709
  Receipt Date: 20210709
  Transmission Date: 20211014
  Serious: No
  Sender: FDA-Public Use
  Company Number: US-ASTELLAS-2021US002143

PATIENT
  Age: 83 Year
  Sex: Male

DRUGS (2)
  1. PEG3350 [Interacting]
     Active Substance: POLYETHYLENE GLYCOL 3350
     Indication: CONSTIPATION
     Dosage: 1 CAPFUL, TWICE DAILY
     Route: 048
     Dates: start: 2020
  2. MYRBETRIQ [Suspect]
     Active Substance: MIRABEGRON
     Indication: PRODUCT USED FOR UNKNOWN INDICATION
     Route: 065
     Dates: start: 202011

REACTIONS (2)
  - Therapeutic response decreased [Unknown]
  - Drug interaction [Unknown]
